FAERS Safety Report 21697286 (Version 1)
Quarter: 2022Q4

REPORT INFORMATION
  Report Type: Report from Study
  Country: US (occurrence: US)
  Receive Date: 20221208
  Receipt Date: 20221208
  Transmission Date: 20230113
  Serious: No
  Sender: FDA-Public Use
  Company Number: US-ABBVIE-4175907

PATIENT
  Sex: Male

DRUGS (3)
  1. HUMIRA [Suspect]
     Active Substance: ADALIMUMAB
     Indication: Rheumatoid arthritis
     Route: 058
  2. Covid-19 vaccine Pfizer/BioNTech [Concomitant]
     Indication: COVID-19 immunisation
     Dosage: COVID-19 VACCINE BOOSTER VACCINE
  3. Covid-19 vaccine Pfizer/BioNTech [Concomitant]
     Indication: COVID-19 immunisation
     Dosage: PFIZER/BIONTECH

REACTIONS (3)
  - Pneumonia [Recovered/Resolved]
  - Cardiac failure congestive [Unknown]
  - Arthralgia [Unknown]
